FAERS Safety Report 20044537 (Version 2)
Quarter: 2021Q4

REPORT INFORMATION
  Report Type: Report from Study
  Country: NL (occurrence: NL)
  Receive Date: 20211108
  Receipt Date: 20211224
  Transmission Date: 20220304
  Serious: Yes (Other)
  Sender: FDA-Public Use
  Company Number: NL-AMGEN-NLDSL2021100063

PATIENT
  Age: 72 Year
  Sex: Male

DRUGS (6)
  1. XGEVA [Suspect]
     Active Substance: DENOSUMAB
     Indication: Prophylaxis
     Dosage: 120 MILLIGRAM (IN 1.7ML), Q4WK
     Route: 058
  2. EPOETIN ALFA [Suspect]
     Active Substance: ERYTHROPOIETIN
     Indication: Product used for unknown indication
     Dosage: 30000IE=0,75ML(40.000IE/ML), QWK
     Route: 065
  3. BUSERELINE [Concomitant]
     Dosage: 9.45 MILLIGRAM, Q3MO
  4. BUSERELINE [Concomitant]
     Dosage: 9.5 MILLIGRAM 1MD1INJ
  5. CALCIUM CARBONATE\CHOLECALCIFEROL [Concomitant]
     Active Substance: CALCIUM CARBONATE\CHOLECALCIFEROL
     Dosage: 1.25G/400IE (500MG CA), QD
  6. GOSERELIN [Concomitant]
     Active Substance: GOSERELIN
     Dosage: 10.8 MILLIGRAM, Q3MO

REACTIONS (3)
  - Jaw disorder [Not Recovered/Not Resolved]
  - Gingival recession [Recovering/Resolving]
  - Tooth extraction [Unknown]

NARRATIVE: CASE EVENT DATE: 20210625
